FAERS Safety Report 5030857-5 (Version None)
Quarter: 2006Q2

REPORT INFORMATION
  Report Type: 
  Country: None (occurrence: None)
  Receive Date: 20060619
  Receipt Date: 20060606
  Transmission Date: 20061013
  Serious: Yes (Hospitalization)
  Sender: FDA-Public Use
  Company Number: E2090-00019-SPO-JP

PATIENT
  Age: 39 Year
  Sex: Female

DRUGS (10)
  1. ZONISAMIDE [Suspect]
     Indication: EPILEPSY
     Dosage: 200 MG, ORAL
     Route: 048
     Dates: start: 20050714, end: 20060429
  2. SELBEX (TEPRENONE) [Concomitant]
  3. HYTHIOL (CYSTEINE) [Concomitant]
  4. CELTECT (OXATOMIDE) [Concomitant]
  5. FAMOTIDINE [Concomitant]
  6. FAMOTIDINE [Concomitant]
  7. BETAMETHASONE [Concomitant]
  8. RINDERON (BETHAMETHASONE SODIUM PHOSPHATE) [Concomitant]
  9. POLARAMINE [Concomitant]
  10. ALLEGRA [Concomitant]

REACTIONS (7)
  - B-LYMPHOCYTE COUNT DECREASED [None]
  - BLOOD IMMUNOGLOBULIN A DECREASED [None]
  - BLOOD IMMUNOGLOBULIN G DECREASED [None]
  - BLOOD IMMUNOGLOBULIN M DECREASED [None]
  - IMMUNOGLOBULINS DECREASED [None]
  - LYMPHOCYTE STIMULATION TEST POSITIVE [None]
  - VOMITING [None]
